FAERS Safety Report 9571280 (Version 1)
Quarter: 2013Q4

REPORT INFORMATION
  Report Type: Spontaneous
  Country: US (occurrence: US)
  Receive Date: 20131001
  Receipt Date: 20131001
  Transmission Date: 20140711
  Serious: Yes (Hospitalization)
  Sender: FDA-Public Use
  Company Number: US-ASTELLAS-2013US010080

PATIENT
  Age: 57 Year
  Sex: Male

DRUGS (2)
  1. PROGRAF [Suspect]
     Indication: LIVER TRANSPLANT
     Dosage: 2 MG, UID/QD
     Route: 048
  2. FLU SHOT [Suspect]
     Indication: PRODUCT USED FOR UNKNOWN INDICATION
     Dosage: UNK
     Route: 065
     Dates: start: 201308, end: 2013

REACTIONS (8)
  - Colonoscopy [Unknown]
  - Immunosuppression [Recovering/Resolving]
  - Respiratory tract infection [Recovering/Resolving]
  - Gastrointestinal infection [Recovering/Resolving]
  - Nasal congestion [Recovering/Resolving]
  - Malaise [Recovering/Resolving]
  - Hyperhidrosis [Recovering/Resolving]
  - White blood cell count decreased [Recovering/Resolving]
